FAERS Safety Report 8442951-7 (Version None)
Quarter: 2012Q2

REPORT INFORMATION
  Report Type: 
  Country: None (occurrence: None)
  Receive Date: 20120615
  Receipt Date: 20120608
  Transmission Date: 20120825
  Serious: Yes (Other)
  Sender: FDA-Public Use
  Company Number: US-PFIZER INC-2010034417

PATIENT
  Sex: Male

DRUGS (6)
  1. DILANTIN [Suspect]
     Dosage: 100 MG, UNK
  2. DILANTIN [Suspect]
     Dosage: 100 MG, TWO TABLETS TWICE DAILY
     Route: 048
     Dates: start: 20061128
  3. DILANTIN [Suspect]
     Indication: CONVULSION
     Dosage: 30 MG, 1X/DAY
     Route: 048
  4. DILANTIN-125 [Suspect]
     Indication: CONVULSION
     Dosage: UNK
     Dates: start: 19970101, end: 20090901
  5. DILANTIN-125 [Suspect]
     Dosage: 430 MG, UNK
     Dates: start: 20080612
  6. DILANTIN [Suspect]
     Dosage: 200 MG, 2X/DAY
     Dates: start: 20060516

REACTIONS (1)
  - STEVENS-JOHNSON SYNDROME [None]
